FAERS Safety Report 21572636 (Version 2)
Quarter: 2022Q4

REPORT INFORMATION
  Report Type: Spontaneous
  Country: US (occurrence: US)
  Receive Date: 20221109
  Receipt Date: 20221118
  Transmission Date: 20230113
  Serious: No
  Sender: FDA-Public Use
  Company Number: US-BAXTER-2022BAX023825

PATIENT

DRUGS (1)
  1. NITROGLYCERIN IN DEXTROSE [Suspect]
     Active Substance: NITROGLYCERIN
     Dosage: 200 MCG (50MG/250ML)
     Route: 022
     Dates: start: 202210

REACTIONS (1)
  - Hypotension [Recovered/Resolved]

NARRATIVE: CASE EVENT DATE: 20221001
